FAERS Safety Report 20098121 (Version 1)
Quarter: 2021Q4

REPORT INFORMATION
  Report Type: Spontaneous
  Country: CA (occurrence: CA)
  Receive Date: 20211122
  Receipt Date: 20211122
  Transmission Date: 20220303
  Serious: Yes (Hospitalization)
  Sender: FDA-Public Use
  Company Number: CA-TEVA-2021-CA-1979146

PATIENT
  Age: 91 Year
  Sex: Male
  Weight: 65 kg

DRUGS (14)
  1. AMIODARONE [Suspect]
     Active Substance: AMIODARONE
     Dosage: 200 MILLIGRAM DAILY;
     Route: 065
  2. ACETAMINOPHEN [Concomitant]
     Active Substance: ACETAMINOPHEN
  3. ALFUZOSIN [Concomitant]
     Active Substance: ALFUZOSIN
  4. DILTIAZEM [Concomitant]
     Active Substance: DILTIAZEM
  5. DUTASTERIDE [Concomitant]
     Active Substance: DUTASTERIDE
  6. ENALAPRIL [Concomitant]
     Active Substance: ENALAPRIL
  7. FERROUS FUMARATE [Concomitant]
     Active Substance: FERROUS FUMARATE
  8. GLICLAZIDE [Concomitant]
     Active Substance: GLICLAZIDE
  9. VITAMINS [Concomitant]
     Active Substance: VITAMINS
  10. PANTOPRAZOLE [Concomitant]
     Active Substance: PANTOPRAZOLE
  11. RIVAROXABAN [Concomitant]
     Active Substance: RIVAROXABAN
  12. ROSUVASTATIN [Concomitant]
     Active Substance: ROSUVASTATIN
  13. VITAMIN B12 [Concomitant]
     Active Substance: CYANOCOBALAMIN
  14. VITAMIN C [Concomitant]
     Active Substance: ASCORBIC ACID

REACTIONS (1)
  - Hypoglycaemia [Recovering/Resolving]
